FAERS Safety Report 22111017 (Version 2)
Quarter: 2023Q2

REPORT INFORMATION
  Report Type: Spontaneous
  Country: US (occurrence: US)
  Receive Date: 20230317
  Receipt Date: 20230405
  Transmission Date: 20230722
  Serious: Yes (Hospitalization, Other)
  Sender: FDA-Public Use
  Company Number: US-DSJP-DSU-2023-109987

PATIENT
  Sex: Female

DRUGS (3)
  1. ENHERTU [Suspect]
     Active Substance: FAM-TRASTUZUMAB DERUXTECAN-NXKI
     Indication: Breast cancer stage IV
     Dosage: UNK
     Route: 042
     Dates: start: 2022
  2. ENHERTU [Suspect]
     Active Substance: FAM-TRASTUZUMAB DERUXTECAN-NXKI
     Dosage: UNK
     Route: 042
     Dates: start: 2023
  3. ZOMETA [Concomitant]
     Active Substance: ZOLEDRONIC ACID
     Indication: Product used for unknown indication
     Dosage: UNK
     Route: 065
     Dates: start: 2023

REACTIONS (24)
  - Yellow skin [Not Recovered/Not Resolved]
  - Unevaluable event [Not Recovered/Not Resolved]
  - Seizure [Not Recovered/Not Resolved]
  - Amnesia [Not Recovered/Not Resolved]
  - Incorrect dosage administered [Not Recovered/Not Resolved]
  - Vomiting [Recovered/Resolved]
  - Mobility decreased [Not Recovered/Not Resolved]
  - Blood test abnormal [Not Recovered/Not Resolved]
  - White blood cell count increased [Not Recovered/Not Resolved]
  - Laboratory test abnormal [Not Recovered/Not Resolved]
  - Infection [Not Recovered/Not Resolved]
  - Alopecia [Not Recovered/Not Resolved]
  - Dehydration [Not Recovered/Not Resolved]
  - Dysgeusia [Not Recovered/Not Resolved]
  - Disease progression [Not Recovered/Not Resolved]
  - Poisoning [Not Recovered/Not Resolved]
  - Fatigue [Not Recovered/Not Resolved]
  - Speech disorder [Not Recovered/Not Resolved]
  - Fall [Recovered/Resolved]
  - Inappropriate schedule of product administration [Not Recovered/Not Resolved]
  - Incorrect product administration duration [Not Recovered/Not Resolved]
  - Emotional disorder [Not Recovered/Not Resolved]
  - Anger [Not Recovered/Not Resolved]
  - Conversion disorder [Not Recovered/Not Resolved]

NARRATIVE: CASE EVENT DATE: 20230101
